FAERS Safety Report 6449659-8 (Version None)
Quarter: 2009Q4

REPORT INFORMATION
  Report Type: 
  Country: None (occurrence: None)
  Receive Date: 20091120
  Receipt Date: 20091111
  Transmission Date: 20100525
  Serious: Yes (Other)
  Sender: FDA-Public Use
  Company Number: PHHY2009JP49588

PATIENT
  Age: 31 Year
  Sex: Male

DRUGS (11)
  1. TEGRETOL [Suspect]
     Indication: TRIGEMINAL NEURALGIA
     Dosage: 1000 MG, UNK
     Dates: start: 19860101
  2. TEGRETOL [Suspect]
     Dosage: 600 MG, UNK
  3. TEGRETOL [Suspect]
     Dosage: 1600 MG, UNK
  4. TEGRETOL [Suspect]
     Dosage: 600 MG, UNK
  5. TEGRETOL [Suspect]
     Dosage: 1400 MG, UNK
  6. TEGRETOL [Suspect]
     Dosage: 400 MG, UNK
  7. TEGRETOL [Suspect]
     Dosage: 1100 MG, UNK
  8. KAKKON-TO [Concomitant]
     Indication: TRIGEMINAL NEURALGIA
     Dosage: UNK
  9. SAIKOKEISHITOU [Concomitant]
     Indication: TRIGEMINAL NEURALGIA
     Dosage: UNK
  10. KEISIKAJUTUBUTO [Concomitant]
     Indication: TRIGEMINAL NEURALGIA
     Dosage: UNK
  11. ACONINSUN [Concomitant]
     Dosage: UNK

REACTIONS (3)
  - GAMMA-GLUTAMYLTRANSFERASE INCREASED [None]
  - HYPERTHERMIA MALIGNANT [None]
  - PERIPHERAL NERVE DECOMPRESSION [None]
